FAERS Safety Report 8961460 (Version 1)
Quarter: 2012Q4

REPORT INFORMATION
  Report Type: 
  Country: US (occurrence: US)
  Receive Date: 20121212
  Receipt Date: 20121212
  Transmission Date: 20130627
  Serious: No
  Sender: FDA-Public Use
  Company Number: US-009507513-1212USA004670

PATIENT
  Age: 11 Year
  Sex: Male
  Weight: 38.55 kg

DRUGS (3)
  1. CLARITIN REDITABS [Suspect]
     Indication: SEASONAL ALLERGY
     Dosage: 10 mg, prn
     Route: 048
  2. CLARITIN REDITABS [Suspect]
     Dosage: 10 mg, qpm
     Route: 048
     Dates: start: 20121130
  3. CLARITIN REDITABS [Suspect]
     Dosage: 10 mg, qam
     Route: 048
     Dates: start: 20121201

REACTIONS (1)
  - Overdose [Unknown]
